FAERS Safety Report 5654971-6 (Version None)
Quarter: 2008Q1

REPORT INFORMATION
  Report Type: 
  Country: None (occurrence: None)
  Receive Date: 20080307
  Receipt Date: 20071024
  Transmission Date: 20080703
  Serious: No
  Sender: FDA-Public Use
  Company Number: A0685675A

PATIENT
  Age: 58 Year
  Sex: Female

DRUGS (4)
  1. REQUIP [Suspect]
     Indication: RESTLESS LEGS SYNDROME
     Dosage: .25MG PER DAY
     Route: 048
     Dates: start: 20070901, end: 20070901
  2. CITALOPRAM HYDROBROMIDE [Concomitant]
  3. SYNTHROID [Concomitant]
  4. PRILOSEC [Concomitant]

REACTIONS (1)
  - DYSPNOEA [None]
